FAERS Safety Report 5588620-2 (Version None)
Quarter: 2008Q1

REPORT INFORMATION
  Report Type: 
  Country: None (occurrence: None)
  Receive Date: 20080111
  Receipt Date: 20080107
  Transmission Date: 20080703
  Serious: Yes (Other)
  Sender: FDA-Public Use
  Company Number: CH-PFIZER INC-2007086608

PATIENT
  Age: 16 Year
  Sex: Male
  Weight: 76 kg

DRUGS (2)
  1. SERTRALINE [Suspect]
     Indication: OBSESSIVE-COMPULSIVE DISORDER
     Route: 048
  2. ZYPREXA [Suspect]
     Indication: PERSONALITY DISORDER
     Dosage: DAILY DOSE:10MG
     Route: 048

REACTIONS (13)
  - AKATHISIA [None]
  - BLEPHAROSPASM [None]
  - CONDITION AGGRAVATED [None]
  - CONJUNCTIVITIS [None]
  - DRUG INEFFECTIVE [None]
  - DRY EYE [None]
  - DYSPEPSIA [None]
  - HYPOMANIA [None]
  - MUSCLE SPASMS [None]
  - PSYCHOMOTOR SKILLS IMPAIRED [None]
  - RESTLESSNESS [None]
  - TENSION [None]
  - TREMOR [None]
